FAERS Safety Report 22771306 (Version 3)
Quarter: 2023Q4

REPORT INFORMATION
  Report Type: Report from Study
  Country: PL (occurrence: None)
  Receive Date: 20230801
  Receipt Date: 20231127
  Transmission Date: 20240109
  Serious: Yes (Hospitalization)
  Sender: FDA-Public Use
  Company Number: PL-ROCHE-3354062

PATIENT
  Age: 64 Year
  Sex: Male
  Weight: 84 kg

DRUGS (3)
  1. ATEZOLIZUMAB [Suspect]
     Active Substance: ATEZOLIZUMAB
     Indication: Small cell lung cancer extensive stage
     Dosage: ON 15/MAR/2023, RECEIVED MOST RECENT DOSE 1200 MG OF ATEZOLIZUMAB PRIOR TO AE (ADVERSE EVENT) AND SA
     Route: 041
     Dates: start: 20230111
  2. CARBOPLATIN [Suspect]
     Active Substance: CARBOPLATIN
     Indication: Small cell lung cancer extensive stage
     Dosage: ON 15/MAR/2023, RECEIVED MOST RECENT DOSE 659.36 MG OF CARBOPLATIN PRIOR TO AE AND SAE
     Route: 042
     Dates: start: 20230111
  3. ETOPOSIDE [Suspect]
     Active Substance: ETOPOSIDE
     Indication: Small cell lung cancer extensive stage
     Dosage: ON 17/MAR/2023, RECEIVED MOST RECENT DOSE 190.92 MG OF ETOPOSIDE PRIOR TO AE AND SAE.?FREQUENCY  ON
     Route: 065
     Dates: start: 20230111

REACTIONS (1)
  - Tenosynovitis [Not Recovered/Not Resolved]

NARRATIVE: CASE EVENT DATE: 20230518
